FAERS Safety Report 6803242-0 (Version None)
Quarter: 2010Q2

REPORT INFORMATION
  Report Type: 
  Country: None (occurrence: None)
  Receive Date: 20100628
  Receipt Date: 20100621
  Transmission Date: 20101027
  Serious: Yes (Hospitalization)
  Sender: FDA-Public Use
  Company Number: D0068035A

PATIENT
  Age: 66 Year
  Sex: Female
  Weight: 71 kg

DRUGS (5)
  1. REQUIP [Suspect]
     Dosage: 2MG PER DAY
     Route: 048
     Dates: end: 20071015
  2. ARICEPT [Suspect]
     Dosage: 5MG TWICE PER DAY
     Route: 048
     Dates: end: 20071015
  3. BELOC ZOK FORTE [Concomitant]
     Dosage: 190MG TWICE PER DAY
     Route: 048
     Dates: end: 20071015
  4. LEPONEX [Concomitant]
     Dosage: 100MG PER DAY
     Route: 048
  5. VENLAFAXINE HCL [Concomitant]
     Dosage: 75MG PER DAY
     Route: 048
     Dates: end: 20071015

REACTIONS (2)
  - DIARRHOEA [None]
  - VOMITING [None]
